FAERS Safety Report 11189312 (Version 1)
Quarter: 2015Q2

REPORT INFORMATION
  Report Type: Spontaneous
  Country: US (occurrence: None)
  Receive Date: 20150612
  Receipt Date: 20150612
  Transmission Date: 20150821
  Serious: Yes (Hospitalization)
  Sender: FDA-Public Use
  Company Number: None

PATIENT
  Age: 60 Year
  Sex: Male

DRUGS (7)
  1. CAPECITABINE. [Suspect]
     Active Substance: CAPECITABINE
     Indication: NEOPLASM MALIGNANT
     Dosage: 14 OF 21 DAYS
     Route: 048
  2. LEVOTHYROXIN [Concomitant]
     Active Substance: LEVOTHYROXINE
  3. CAPECITABINE. [Suspect]
     Active Substance: CAPECITABINE
     Indication: NEOPLASM MALIGNANT
     Dosage: 14 OF 21 DAYS
     Route: 048
  4. BACLOFEN. [Concomitant]
     Active Substance: BACLOFEN
  5. LORAZEPAM. [Concomitant]
     Active Substance: LORAZEPAM
  6. MINOCYCLINE [Concomitant]
     Active Substance: MINOCYCLINE\MINOCYCLINE HYDROCHLORIDE
  7. PROCHLORPER [Concomitant]

REACTIONS (2)
  - Constipation [None]
  - Infection [None]

NARRATIVE: CASE EVENT DATE: 201506
